FAERS Safety Report 8266429-9 (Version None)
Quarter: 2012Q2

REPORT INFORMATION
  Report Type: 
  Country: None (occurrence: None)
  Receive Date: 20120406
  Receipt Date: 20120328
  Transmission Date: 20120825
  Serious: Yes (Hospitalization)
  Sender: FDA-Public Use
  Company Number: US-ASTRAZENECA-2012SE20774

PATIENT
  Age: 63 Year
  Sex: Female
  Weight: 76.2 kg

DRUGS (8)
  1. AMLODIPINE [Concomitant]
  2. CALCIUM GLUCONATE [Concomitant]
  3. HYDROCHLOROTHIAZIDE [Concomitant]
  4. VIMOVO [Suspect]
     Indication: GASTROOESOPHAGEAL REFLUX DISEASE
     Dosage: 500/25MG
     Route: 048
     Dates: start: 20111013, end: 20111028
  5. UNKNOWN [Suspect]
     Indication: RHEUMATOID ARTHRITIS
     Route: 048
     Dates: start: 20091110
  6. RANITIDINE [Concomitant]
  7. MELOXICAM [Concomitant]
  8. METOPROLOL TARTRATE [Concomitant]

REACTIONS (3)
  - NAUSEA [None]
  - CHEST PAIN [None]
  - RASH [None]
